FAERS Safety Report 6602609-3 (Version None)
Quarter: 2010Q1

REPORT INFORMATION
  Report Type: 
  Country: None (occurrence: None)
  Receive Date: 20100225
  Receipt Date: 20100217
  Transmission Date: 20100710
  Serious: Yes (Other)
  Sender: FDA-Public Use
  Company Number: JP-AMGEN-US394558

PATIENT
  Age: 67 Year
  Sex: Female

DRUGS (1)
  1. ENBREL [Suspect]
     Indication: RHEUMATOID ARTHRITIS
     Dosage: DOSE AND FREQUENCY NOT SPECIFIED
     Route: 058

REACTIONS (5)
  - ABSCESS OF SALIVARY GLAND [None]
  - CONDITION AGGRAVATED [None]
  - INTERSTITIAL LUNG DISEASE [None]
  - SKIN ULCER [None]
  - VASCULITIS [None]
